FAERS Safety Report 5113909-0 (Version None)
Quarter: 2006Q3

REPORT INFORMATION
  Report Type: 
  Country: None (occurrence: None)
  Receive Date: 20060922
  Receipt Date: 20060922
  Transmission Date: 20061208
  Serious: Yes (Hospitalization)
  Sender: FDA-Public Use
  Company Number: None

PATIENT
  Age: 45 Year
  Sex: Female
  Weight: 56.7 kg

DRUGS (3)
  1. LYRICA [Suspect]
     Indication: NEURALGIA
     Dosage: 75 MG QHS PO
     Route: 048
     Dates: start: 20060701, end: 20060830
  2. WELLBUTRIN XL [Concomitant]
  3. TOPAMAX [Concomitant]

REACTIONS (1)
  - HEPATITIS CHOLESTATIC [None]
